FAERS Safety Report 10274531 (Version 1)
Quarter: 2014Q3

REPORT INFORMATION
  Report Type: Spontaneous
  Country: US (occurrence: US)
  Receive Date: 20140702
  Receipt Date: 20140702
  Transmission Date: 20150326
  Serious: No
  Sender: FDA-Public Use
  Company Number: US-B.I. PHARMACEUTICALS,INC./RIDGEFIELD-2014-BI-28628BP

PATIENT
  Age: 71 Year
  Sex: Female

DRUGS (1)
  1. SPIRIVA [Suspect]
     Active Substance: TIOTROPIUM BROMIDE MONOHYDRATE
     Indication: EMPHYSEMA
     Dosage: 18 MCG
     Route: 055
     Dates: start: 201404, end: 201405

REACTIONS (3)
  - Dyspnoea [Not Recovered/Not Resolved]
  - Dysgeusia [Recovered/Resolved]
  - Intraocular pressure increased [Not Recovered/Not Resolved]

NARRATIVE: CASE EVENT DATE: 201404
